FAERS Safety Report 21124944 (Version 1)
Quarter: 2022Q3

REPORT INFORMATION
  Report Type: Spontaneous
  Country: US (occurrence: None)
  Receive Date: 20220722
  Receipt Date: 20220722
  Transmission Date: 20221027
  Serious: No
  Sender: FDA-Public Use
  Company Number: None

PATIENT
  Age: 51 Year
  Sex: Female

DRUGS (1)
  1. CAPECITABINE [Suspect]
     Active Substance: CAPECITABINE
     Dosage: FREQUENCY : TWICE A DAY;?
     Route: 048

REACTIONS (6)
  - Sensitive skin [None]
  - Fingerprint loss [None]
  - Alopecia [None]
  - Angiopathy [None]
  - Disease progression [None]
  - Hepatic cancer [None]

NARRATIVE: CASE EVENT DATE: 20220623
